FAERS Safety Report 11410769 (Version 1)
Quarter: 2015Q3

REPORT INFORMATION
  Report Type: Spontaneous
  Country: US (occurrence: US)
  Receive Date: 20150821
  Receipt Date: 20150821
  Transmission Date: 20151125
  Serious: No
  Sender: FDA-Public Use
  Company Number: US-ELI_LILLY_AND_COMPANY-US201005003086

PATIENT
  Age: 71 Year
  Sex: Female

DRUGS (2)
  1. HUMULIN 70/30 [Suspect]
     Active Substance: INSULIN HUMAN
     Dosage: UNK, AS NEEDED
  2. INSULIN [Concomitant]
     Active Substance: INSULIN NOS

REACTIONS (5)
  - Blood glucose increased [Recovering/Resolving]
  - Drug ineffective [Unknown]
  - Dry mouth [Unknown]
  - Blood glucose increased [Unknown]
  - Pruritus [Unknown]

NARRATIVE: CASE EVENT DATE: 2009
